FAERS Safety Report 7073779-0 (Version None)
Quarter: 2010Q4

REPORT INFORMATION
  Report Type: 
  Country: None (occurrence: None)
  Receive Date: 20101029
  Receipt Date: 20100816
  Transmission Date: 20110411
  Serious: No
  Sender: FDA-Public Use
  Company Number: A0876096A

PATIENT
  Age: 61 Year
  Sex: Female

DRUGS (5)
  1. ADVAIR DISKUS 100/50 [Suspect]
     Indication: CHRONIC OBSTRUCTIVE PULMONARY DISEASE
     Dosage: 1PUFF PER DAY
     Route: 055
     Dates: start: 20010101
  2. LISINOPRIL [Concomitant]
  3. SIMVASTATIN [Concomitant]
  4. OMEPRAZOLE [Concomitant]
  5. ALBUTEROL [Concomitant]

REACTIONS (1)
  - CANDIDIASIS [None]
